FAERS Safety Report 15134063 (Version 1)
Quarter: 2018Q3

REPORT INFORMATION
  Report Type: Report from Study
  Country: ES (occurrence: ES)
  Receive Date: 20180712
  Receipt Date: 20180712
  Transmission Date: 20181010
  Serious: Yes (Hospitalization)
  Sender: FDA-Public Use
  Company Number: ES-TEVA-2018-ES-924086

PATIENT
  Age: 42 Year
  Sex: Female

DRUGS (8)
  1. CELLCEPT [Suspect]
     Active Substance: MYCOPHENOLATE MOFETIL\MYCOPHENOLATE MOFETIL HYDROCHLORIDE
     Indication: HEART TRANSPLANT
     Dosage: 1GR/12H
     Route: 048
     Dates: start: 20170921, end: 20171001
  2. ESMERON 10 MG/ML SOLUCION INYECTABLE Y PARA PERFUSION , 10 VIALES DE 1 [Concomitant]
     Dates: start: 20170918
  3. METAMIZOL (111A) [Concomitant]
     Active Substance: METAMIZOL SODIUM
     Dosage: 2GR/8H
     Route: 042
     Dates: start: 20170918
  4. METILPREDNISOLONA (888A) [Suspect]
     Active Substance: METHYLPREDNISOLONE
     Indication: HEART TRANSPLANT
     Dosage: 100 MILLIGRAM DAILY; 100 MG DIA
     Route: 042
     Dates: start: 20170921, end: 20171001
  5. HEPARINA SODICA 1000 UI/ML SOLUCI?N INYECTABLE , 1 VIAL DE 5 ML [Suspect]
     Active Substance: HEPARIN SODIUM
     Dosage: SP
     Route: 042
     Dates: start: 20170918
  6. TACROLIMUS. [Suspect]
     Active Substance: TACROLIMUS
     Indication: HEART TRANSPLANT
     Dosage: SP
     Route: 042
     Dates: start: 20170921, end: 20171001
  7. PANTOPRAZOL (7275A) [Concomitant]
     Active Substance: PANTOPRAZOLE
     Dosage: 1 AMP DIA
     Route: 042
     Dates: start: 20170918
  8. LEVOTIROXINA (1842A) [Concomitant]
     Dosage: 50 MICROGRAM DAILY; 50 MCG DIA
     Route: 048
     Dates: start: 20050101

REACTIONS (3)
  - Pancreatitis acute [Recovered/Resolved]
  - Pancytopenia [Recovered/Resolved]
  - Upper gastrointestinal haemorrhage [Recovered/Resolved]

NARRATIVE: CASE EVENT DATE: 20171001
